FAERS Safety Report 8479872-X (Version None)
Quarter: 2012Q2

REPORT INFORMATION
  Report Type: 
  Country: None (occurrence: None)
  Receive Date: 20120629
  Receipt Date: 20120621
  Transmission Date: 20120825
  Serious: Yes (Death, Other)
  Sender: FDA-Public Use
  Company Number: IT-CELGENEUS-083-21880-12063278

PATIENT

DRUGS (1)
  1. REVLIMID [Suspect]
     Indication: MULTIPLE MYELOMA
     Route: 048
     Dates: start: 20071001, end: 20111101

REACTIONS (11)
  - MULTIPLE MYELOMA [None]
  - NEUTROPENIA [None]
  - TOXICITY TO VARIOUS AGENTS [None]
  - DEATH [None]
  - NEUROPATHY PERIPHERAL [None]
  - THROMBOCYTOPENIA [None]
  - CARDIAC FAILURE [None]
  - PNEUMONIA [None]
  - LYMPHOPENIA [None]
  - RASH [None]
  - FATIGUE [None]
